FAERS Safety Report 8232621-2 (Version None)
Quarter: 2012Q1

REPORT INFORMATION
  Report Type: 
  Country: None (occurrence: None)
  Receive Date: 20120323
  Receipt Date: 20120313
  Transmission Date: 20120608
  Serious: Yes (Hospitalization)
  Sender: FDA-Public Use
  Company Number: PHHY2012US021494

PATIENT
  Age: 71 Year
  Sex: Female

DRUGS (5)
  1. SYNTHROID [Concomitant]
     Indication: THYROID THERAPY
     Route: 048
  2. TENORMIN [Concomitant]
     Indication: BLOOD PRESSURE
     Dosage: 50 MG, QHS
     Route: 048
  3. BUFFERIN [Suspect]
     Indication: HEADACHE
     Dosage: 2 DF, PRN
     Route: 048
  4. LISINOPRIL [Suspect]
     Indication: HYPERTENSION
  5. BENICAR [Concomitant]
     Indication: BLOOD PRESSURE
     Dosage: 20 MG, EVERY MORNING

REACTIONS (5)
  - HEART RATE INCREASED [None]
  - BLOOD PRESSURE INCREASED [None]
  - THYROID FUNCTION TEST ABNORMAL [None]
  - COUGH [None]
  - PALPITATIONS [None]
